FAERS Safety Report 20838702 (Version 1)
Quarter: 2022Q2

REPORT INFORMATION
  Report Type: Spontaneous
  Country: AR (occurrence: AR)
  Receive Date: 20220517
  Receipt Date: 20220517
  Transmission Date: 20220721
  Serious: Yes (Other)
  Sender: FDA-Public Use
  Company Number: AR-GLAXOSMITHKLINE-AR2022AMR078251

PATIENT

DRUGS (1)
  1. NUCALA [Suspect]
     Active Substance: MEPOLIZUMAB
     Indication: Asthma
     Dosage: 100 MG/ML
     Route: 058
     Dates: start: 20210622, end: 20211125

REACTIONS (2)
  - Pneumonia [Recovered/Resolved]
  - Dyspnoea [Recovered/Resolved]
